FAERS Safety Report 4891207-8 (Version None)
Quarter: 2006Q1

REPORT INFORMATION
  Report Type: 
  Country: None (occurrence: None)
  Receive Date: 20060125
  Receipt Date: 20051201
  Transmission Date: 20060701
  Serious: Yes (Hospitalization)
  Sender: FDA-Public Use
  Company Number: FRASAN04133

PATIENT
  Age: 17 Month
  Sex: Male

DRUGS (2)
  1. AMOXICILLINE + AC CLAVULANIQUE [Suspect]
     Indication: EAR INFECTION
     Route: 048
     Dates: start: 20040917, end: 20040925
  2. MUCOMYST [Concomitant]
     Route: 065
     Dates: end: 20040923

REACTIONS (7)
  - ALANINE AMINOTRANSFERASE INCREASED [None]
  - ASPARTATE AMINOTRANSFERASE INCREASED [None]
  - BLOOD ALKALINE PHOSPHATASE INCREASED [None]
  - DIARRHOEA [None]
  - GAMMA-GLUTAMYLTRANSFERASE INCREASED [None]
  - PYREXIA [None]
  - URTICARIA GENERALISED [None]
